FAERS Safety Report 10100692 (Version 2)
Quarter: 2015Q1

REPORT INFORMATION
  Report Type: Spontaneous
  Country: TR (occurrence: TR)
  Receive Date: 20140423
  Receipt Date: 20150330
  Transmission Date: 20150720
  Serious: Yes (Hospitalization, Other)
  Sender: FDA-Public Use
  Company Number: TR-MYLANLABS-2014S1008519

PATIENT

DRUGS (1)
  1. ISOTRETINOIN [Suspect]
     Active Substance: ISOTRETINOIN
     Indication: ACNE
     Dosage: 0.5MG/KG/DAY
     Route: 048

REACTIONS (4)
  - Pericardial effusion [Recovered/Resolved]
  - Dry skin [Unknown]
  - Atrial tachycardia [Recovered/Resolved]
  - Lip dry [Unknown]
